FAERS Safety Report 5739703-5 (Version None)
Quarter: 2008Q2

REPORT INFORMATION
  Report Type: 
  Country: None (occurrence: None)
  Receive Date: 20080513
  Receipt Date: 20080505
  Transmission Date: 20081010
  Serious: Yes (Other)
  Sender: FDA-Public Use
  Company Number: CHNY2008DE01676

PATIENT
  Age: 69 Year
  Sex: Female

DRUGS (4)
  1. NEDA FRUECHTEWUERFEL (NCH)(SENNA) TABLET [Suspect]
     Indication: CONSTIPATION
     Dosage: ORAL
     Route: 048
  2. ESTRADIOL [Concomitant]
  3. OPIPRAMOL (OPIPRAMOL) [Concomitant]
  4. INEGY (EZETIMIBE, SIMVASTATIN) [Concomitant]

REACTIONS (4)
  - DRUG ABUSE [None]
  - DRUG EFFECT DECREASED [None]
  - INTENTIONAL DRUG MISUSE [None]
  - PHARMACEUTICAL PRODUCT COMPLAINT [None]
